FAERS Safety Report 7005494-3 (Version None)
Quarter: 2010Q3

REPORT INFORMATION
  Report Type: 
  Country: None (occurrence: None)
  Receive Date: 20100917
  Receipt Date: 20100903
  Transmission Date: 20110219
  Serious: Yes (Hospitalization)
  Sender: FDA-Public Use
  Company Number: CIP10001353

PATIENT
  Age: 73 Year
  Sex: Female

DRUGS (2)
  1. RISEDRONATE SODIUM [Suspect]
     Indication: OSTEOPOROSIS
     Dosage: 2.5 MG DAILY, ORAL
     Route: 048
     Dates: start: 20100422, end: 20100501
  2. CALCIUM LACTATE (CALCIUM LACTATE) [Concomitant]

REACTIONS (7)
  - ADJUSTMENT DISORDER [None]
  - BLOOD PRESSURE DIASTOLIC DECREASED [None]
  - DIZZINESS [None]
  - DYSKINESIA [None]
  - DYSPNOEA [None]
  - HEART RATE DECREASED [None]
  - LIMB DISCOMFORT [None]
